FAERS Safety Report 8089167-4 (Version None)
Quarter: 2012Q1

REPORT INFORMATION
  Report Type: 
  Country: None (occurrence: None)
  Receive Date: 20120128
  Receipt Date: 20110831
  Transmission Date: 20120608
  Serious: No
  Sender: FDA-Public Use
  Company Number: US-ABBOTT-11P-163-0731886-00

PATIENT
  Age: 40 Year
  Sex: Female

DRUGS (7)
  1. HUMIRA [Suspect]
     Indication: CROHN'S DISEASE
     Dosage: 4 INJ-DAY 1
     Route: 058
     Dates: start: 20110611, end: 20110723
  2. ACIPHEX [Concomitant]
     Indication: PRODUCT USED FOR UNKNOWN INDICATION
     Dosage: DAILY
  3. HUMIRA [Suspect]
     Dosage: 2 INJ-DAY 15
     Route: 058
  4. MULTI-VITAMIN [Concomitant]
     Indication: PRODUCT USED FOR UNKNOWN INDICATION
  5. LEVBID [Concomitant]
     Indication: PRODUCT USED FOR UNKNOWN INDICATION
     Dosage: DAILY
  6. PROBIOTICS [Concomitant]
     Indication: PRODUCT USED FOR UNKNOWN INDICATION
  7. HUMIRA [Suspect]
     Dosage: DAY 29
     Route: 058

REACTIONS (8)
  - PYREXIA [None]
  - INJECTION SITE ERYTHEMA [None]
  - FATIGUE [None]
  - HYPERSOMNIA [None]
  - DYSSTASIA [None]
  - MUSCLE SPASMS [None]
  - INJECTION SITE HAEMATOMA [None]
  - CROHN'S DISEASE [None]
